FAERS Safety Report 18806501 (Version 1)
Quarter: 2021Q1

REPORT INFORMATION
  Report Type: Spontaneous
  Country: CA (occurrence: CA)
  Receive Date: 20210129
  Receipt Date: 20210129
  Transmission Date: 20210419
  Serious: Yes (Other)
  Sender: FDA-Public Use
  Company Number: CA-ROCHE-2756551

PATIENT
  Age: 42 Year
  Sex: Female
  Weight: 81 kg

DRUGS (21)
  1. METHOTREXATE. [Suspect]
     Active Substance: METHOTREXATE
     Indication: PRODUCT USED FOR UNKNOWN INDICATION
     Route: 065
  2. OXYCODONE TEREPHTHALATE [Suspect]
     Active Substance: OXYCODONE TEREPHTHALATE
     Indication: PRODUCT USED FOR UNKNOWN INDICATION
     Route: 065
  3. ACTEMRA [Suspect]
     Active Substance: TOCILIZUMAB
     Indication: PRODUCT USED FOR UNKNOWN INDICATION
     Route: 065
  4. ACETAMINOPHEN. [Suspect]
     Active Substance: ACETAMINOPHEN
     Indication: PRODUCT USED FOR UNKNOWN INDICATION
     Route: 065
  5. CHLORHEXIDINE GLUCONATE. [Suspect]
     Active Substance: CHLORHEXIDINE GLUCONATE
     Indication: PRODUCT USED FOR UNKNOWN INDICATION
     Route: 065
  6. OXYCODONE [Suspect]
     Active Substance: OXYCODONE
     Indication: PRODUCT USED FOR UNKNOWN INDICATION
     Route: 065
  7. ZOPICLONE [Concomitant]
     Active Substance: ZOPICLONE
  8. ENBREL [Suspect]
     Active Substance: ETANERCEPT
     Indication: PRODUCT USED FOR UNKNOWN INDICATION
     Route: 058
  9. TOCOPHEROLS MIXED [Concomitant]
  10. PREDNISONE. [Concomitant]
     Active Substance: PREDNISONE
  11. ARAVA [Suspect]
     Active Substance: LEFLUNOMIDE
     Indication: PRODUCT USED FOR UNKNOWN INDICATION
     Route: 065
  12. SIMPONI [Suspect]
     Active Substance: GOLIMUMAB
     Indication: PRODUCT USED FOR UNKNOWN INDICATION
     Route: 058
  13. CETIRIZINE [Concomitant]
     Active Substance: CETIRIZINE HYDROCHLORIDE
  14. CIMZIA [Suspect]
     Active Substance: CERTOLIZUMAB PEGOL
     Indication: PRODUCT USED FOR UNKNOWN INDICATION
     Route: 058
  15. FISH OIL [Concomitant]
     Active Substance: FISH OIL
  16. HYDROXYCHLOROQUINE [Concomitant]
     Active Substance: HYDROXYCHLOROQUINE
  17. IBUPROFEN. [Concomitant]
     Active Substance: IBUPROFEN
  18. PANTOPRAZOLE [Concomitant]
     Active Substance: PANTOPRAZOLE
  19. TYLENOL [Concomitant]
     Active Substance: ACETAMINOPHEN
  20. VENTOLIN [Concomitant]
     Active Substance: ALBUTEROL SULFATE
  21. ORENCIA [Suspect]
     Active Substance: ABATACEPT
     Indication: PRODUCT USED FOR UNKNOWN INDICATION
     Route: 065

REACTIONS (20)
  - Diarrhoea [Unknown]
  - Night sweats [Unknown]
  - Vomiting [Unknown]
  - Pain [Unknown]
  - Sinusitis [Unknown]
  - Body temperature increased [Unknown]
  - Headache [Unknown]
  - Joint swelling [Unknown]
  - Respiratory tract infection [Unknown]
  - Back pain [Unknown]
  - Respiratory disorder [Unknown]
  - Abdominal pain upper [Unknown]
  - Insomnia [Unknown]
  - Muscle spasticity [Unknown]
  - Asthenia [Unknown]
  - Ear pain [Unknown]
  - Peripheral swelling [Unknown]
  - Pruritus [Unknown]
  - Rash [Unknown]
  - Urticaria [Unknown]
